FAERS Safety Report 4583503-9 (Version None)
Quarter: 2005Q1

REPORT INFORMATION
  Report Type: 
  Country: None (occurrence: None)
  Receive Date: 20050211
  Receipt Date: 20050127
  Transmission Date: 20050727
  Serious: Yes (Other)
  Sender: FDA-Public Use
  Company Number: 2005023591

PATIENT
  Age: 65 Year
  Sex: Male
  Weight: 96.1626 kg

DRUGS (12)
  1. CELEBREX [Suspect]
     Indication: ARTHRITIS
     Dosage: 400 MG (200 MG, 2 IN 1 D), ORAL
     Route: 048
  2. CARVEDILOL [Concomitant]
  3. LEVOTHYROXINE SODIUM [Concomitant]
  4. TRANDOLARPIL (TRANDOLARPIL) [Concomitant]
  5. PRAVASTATIN SODIUM [Concomitant]
  6. PIOGLITAZONE HCL [Concomitant]
  7. LANSOPRAZOLE [Concomitant]
  8. GLIBOMET (GLIBENCLAMIDE, METFORMIN HYDROCHLORIDE) [Concomitant]
  9. ANTIBIOTICS (ANTIBIOTICS) [Concomitant]
  10. VITAMINS (VITAMINS) [Concomitant]
  11. CENTRUM SILVER (ASOCRBIC ACID, CALCIUM, MINERALS NOS, RENTINOL, TOCOPH [Concomitant]
  12. ACETAMINOPHEN [Concomitant]

REACTIONS (5)
  - ABASIA [None]
  - BLADDER CANCER [None]
  - PAIN [None]
  - ROAD TRAFFIC ACCIDENT [None]
  - TREATMENT NONCOMPLIANCE [None]
